FAERS Safety Report 11285087 (Version 1)
Quarter: 2015Q3

REPORT INFORMATION
  Report Type: Spontaneous
  Country: US (occurrence: US)
  Receive Date: 20150720
  Receipt Date: 20150720
  Transmission Date: 20151125
  Serious: No
  Sender: FDA-Public Use
  Company Number: US-TAKEDA-2015TUS002830

PATIENT
  Sex: Female
  Weight: 66 kg

DRUGS (9)
  1. TOFACITINIB [Concomitant]
     Active Substance: TOFACITINIB
     Dosage: 10 MG, QD
     Route: 048
  2. FISH OIL [Concomitant]
     Active Substance: FISH OIL
     Dosage: 1200 MG, QD
     Route: 048
  3. ENTYVIO [Suspect]
     Active Substance: VEDOLIZUMAB
     Indication: COLITIS ULCERATIVE
     Dosage: 300 MG, UNK
     Route: 042
  4. PROBIOTIC [Concomitant]
     Active Substance: PROBIOTICS NOS
     Dosage: UNK
     Route: 048
  5. ASACOL HD [Concomitant]
     Active Substance: MESALAMINE
     Dosage: 1600 MG, TID
     Route: 048
  6. FLAXSEED [Concomitant]
     Active Substance: FLAX SEED
     Dosage: 1000 MG, UNK
     Route: 048
  7. PRENATAL [Concomitant]
     Active Substance: VITAMINS
     Dosage: 28-0.8 MG, UNK
     Route: 048
  8. FERROUS SULFATE [Concomitant]
     Active Substance: FERROUS SULFATE\FERROUS SULFATE, DRIED
     Dosage: 325 MG, QD
     Route: 048
  9. UCERIS [Concomitant]
     Active Substance: BUDESONIDE
     Dosage: 9 MG, QD
     Route: 048

REACTIONS (1)
  - Rash [Unknown]
